FAERS Safety Report 20867659 (Version 1)
Quarter: 2022Q2

REPORT INFORMATION
  Report Type: Spontaneous
  Country: US (occurrence: None)
  Receive Date: 20220524
  Receipt Date: 20220524
  Transmission Date: 20220720
  Serious: Yes (Other)
  Sender: FDA-Public Use
  Company Number: US-Fresenius Kabi-FK202206073

PATIENT
  Age: 55 Year
  Sex: Male

DRUGS (3)
  1. DACARBAZINE [Suspect]
     Active Substance: DACARBAZINE
     Indication: Paraganglion neoplasm malignant
     Dosage: CYADIC CHEMOTHERAPY?FOLLOWING THREE CYCLES OF CHEMOTHERAPY
  2. DOXORUBICIN [Suspect]
     Active Substance: DOXORUBICIN
     Indication: Paraganglion neoplasm malignant
     Dosage: CYADIC CHEMOTHERAPY?FOLLOWING THREE CYCLES OF CHEMOTHERAPY
  3. CYCLOPHOSPHAMIDE [Suspect]
     Active Substance: CYCLOPHOSPHAMIDE
     Indication: Paraganglion neoplasm malignant
     Dosage: CYADIC CHEMOTHERAPY?FOLLOWING THREE CYCLES OF CHEMOTHERAPY

REACTIONS (4)
  - Candida infection [Unknown]
  - Fatigue [Unknown]
  - Mucosal inflammation [Unknown]
  - Neutropenia [Unknown]
